FAERS Safety Report 9620642 (Version 1)
Quarter: 2013Q4

REPORT INFORMATION
  Report Type: Spontaneous
  Country: US (occurrence: US)
  Receive Date: 20131015
  Receipt Date: 20131015
  Transmission Date: 20140711
  Serious: Yes (Hospitalization, Other)
  Sender: FDA-Public Use
  Company Number: US-AMGEN-USASP2013071193

PATIENT
  Age: 52 Year
  Sex: Female

DRUGS (20)
  1. ENBREL [Suspect]
     Indication: PRODUCT USED FOR UNKNOWN INDICATION
     Dosage: UNK
     Route: 065
     Dates: start: 2009, end: 2012
  2. HUMIRA [Suspect]
     Indication: PSORIATIC ARTHROPATHY
     Dosage: 40 MG, UNK
     Route: 065
  3. REMICADE [Suspect]
     Indication: PRODUCT USED FOR UNKNOWN INDICATION
     Dosage: UNK
     Route: 065
     Dates: start: 2012, end: 2012
  4. OXYCONTIN [Suspect]
     Indication: GROIN PAIN
     Dosage: 20 MG, QD
     Route: 065
  5. OXYCONTIN [Suspect]
     Indication: BURSITIS
  6. CORTIZONE /00028601/ [Suspect]
     Indication: GROIN PAIN
     Dosage: UNK
     Route: 065
  7. CORTIZONE /00028601/ [Suspect]
     Indication: BURSITIS
  8. VICODIN [Suspect]
     Indication: GROIN PAIN
     Dosage: UNK
     Route: 065
  9. VICODIN [Suspect]
     Indication: BURSITIS
  10. VICODIN [Suspect]
     Indication: ARTHRALGIA
  11. PERCOCET /00867901/ [Suspect]
     Indication: GROIN PAIN
     Dosage: UNK
     Route: 065
  12. PERCOCET /00867901/ [Suspect]
     Indication: BURSITIS
  13. PERCOCET /00867901/ [Suspect]
     Indication: ARTHRALGIA
  14. KLONOPIN [Concomitant]
     Indication: STRESS
     Dosage: UNK
  15. ZYPREXA [Concomitant]
     Indication: DEPRESSION
     Dosage: UNK
  16. DIOVAN [Concomitant]
     Indication: BLOOD PRESSURE
     Dosage: 80 MG, QD
  17. SYNTHROID [Concomitant]
     Indication: HYPOTHYROIDISM
     Dosage: 0.112 MG, QD
  18. APLENZIN [Concomitant]
     Indication: MOOD SWINGS
     Dosage: UNK
  19. LAMOTRIGINE [Concomitant]
     Indication: DEPRESSION
     Dosage: UNK
  20. RESTORIL                           /00054301/ [Concomitant]
     Indication: INSOMNIA
     Dosage: UNK

REACTIONS (13)
  - Lung neoplasm malignant [Recovered/Resolved]
  - Adverse drug reaction [Unknown]
  - Hospitalisation [Unknown]
  - Groin pain [Unknown]
  - Somnolence [Unknown]
  - Fatigue [Recovered/Resolved]
  - Osteoarthritis [Unknown]
  - Myalgia [Recovered/Resolved]
  - Bursitis [Unknown]
  - Arthralgia [Unknown]
  - Therapeutic response decreased [Unknown]
  - Drug therapy [Unknown]
  - Drug ineffective [Unknown]
